FAERS Safety Report 15373747 (Version 4)
Quarter: 2023Q2

REPORT INFORMATION
  Report Type: Other
  Country: CH (occurrence: None)
  Receive Date: 20180912
  Receipt Date: 20230608
  Transmission Date: 20230721
  Serious: Yes (Disabling)
  Sender: FDA-Public Use
  Company Number: CH-ROCHE-2182975

PATIENT
  Age: 59 Year
  Sex: Female

DRUGS (1)
  1. OCREVUS [Suspect]
     Active Substance: OCRELIZUMAB
     Indication: Multiple sclerosis
     Route: 041
     Dates: start: 20180824, end: 20230414

REACTIONS (2)
  - Oral herpes [Recovered/Resolved]
  - Endocarditis [Unknown]

NARRATIVE: CASE EVENT DATE: 20180829
